FAERS Safety Report 12107350 (Version 1)
Quarter: 2016Q1

REPORT INFORMATION
  Report Type: Spontaneous
  Country: MY (occurrence: AU)
  Receive Date: 20160223
  Receipt Date: 20160223
  Transmission Date: 20160526
  Serious: Yes (Other)
  Sender: FDA-Public Use
  Company Number: AU-HOSPIRA-3176261

PATIENT
  Age: 68 Year
  Sex: Female

DRUGS (2)
  1. VINORELBINE TARTRATE. [Suspect]
     Active Substance: VINORELBINE TARTRATE
     Indication: MYCOSIS FUNGOIDES
     Dosage: ON DAYS 1 AND 8, FOLLOWED BY A 2 WEEK BREAK
     Route: 042
  2. GEMCITABINE HYDROCHLORIDE. [Suspect]
     Active Substance: GEMCITABINE HYDROCHLORIDE
     Indication: MYCOSIS FUNGOIDES
     Dosage: 6 CYCLES
     Route: 042

REACTIONS (1)
  - Hepatitis [Unknown]
